FAERS Safety Report 6839175-3 (Version None)
Quarter: 2010Q2

REPORT INFORMATION
  Report Type: 
  Country: None (occurrence: None)
  Receive Date: 20100625
  Receipt Date: 20090928
  Transmission Date: 20101027
  Serious: Yes (Hospitalization)
  Sender: FDA-Public Use
  Company Number: VISP-PR-0909S-0428

PATIENT
  Age: 64 Year
  Sex: Male

DRUGS (9)
  1. VISIPAQUE [Suspect]
     Indication: CHEST PAIN
     Dosage: 115 ML, SINGLE DOSE, I.V.
     Route: 042
     Dates: start: 20090919, end: 20090919
  2. METFORMIN [Concomitant]
  3. ALLOPURINOL [Concomitant]
  4. MORNIFLUMATE (FLOMAX) [Concomitant]
  5. TERAZOSIN HCL [Concomitant]
  6. SINEMET [Concomitant]
  7. ALLEGRA [Concomitant]
  8. ZOCOR [Concomitant]
  9. LISINOPRIL [Concomitant]

REACTIONS (6)
  - BLOOD CREATININE INCREASED [None]
  - BLOOD GLUCOSE INCREASED [None]
  - DYSPNOEA [None]
  - HYPERSENSITIVITY [None]
  - PURPURA [None]
  - WHITE BLOOD CELL COUNT INCREASED [None]
